FAERS Safety Report 10436448 (Version 1)
Quarter: 2014Q3

REPORT INFORMATION
  Report Type: Spontaneous
  Country: GB (occurrence: None)
  Receive Date: 20140904
  Receipt Date: 20140904
  Transmission Date: 20150326
  Serious: Yes (Disabling, Other)
  Sender: FDA-Public Use
  Company Number: ABR_01792_2014

PATIENT
  Age: 20 Year
  Sex: Male
  Weight: 78 kg

DRUGS (2)
  1. ERYTHROMYCIN (ERYTHROMYCIN) [Suspect]
     Active Substance: ERYTHROMYCIN
     Indication: TOOTH ABSCESS
  2. METRONIDAZOLE (METRONIDAZOLE) [Suspect]
     Active Substance: METRONIDAZOLE
     Indication: TOOTH ABSCESS
     Dosage: TAKEN 2 LAST NIGHT AND 1 THIS MORNIG
     Dates: start: 20140731, end: 20140801

REACTIONS (13)
  - Hypersensitivity [None]
  - Malaise [None]
  - Wheezing [None]
  - Swollen tongue [None]
  - Hypotension [None]
  - Cyanosis [None]
  - Pyrexia [None]
  - Syncope [None]
  - Nausea [None]
  - Pain [None]
  - Injury [None]
  - Swelling face [None]
  - Dyspnoea [None]
